FAERS Safety Report 24878448 (Version 1)
Quarter: 2025Q1

REPORT INFORMATION
  Report Type: Spontaneous
  Country: US (occurrence: US)
  Receive Date: 20250123
  Receipt Date: 20250123
  Transmission Date: 20250409
  Serious: No
  Sender: MYLAN
  Company Number: US-MYLANLABS-2024M1093475

PATIENT
  Age: 66 Year
  Sex: Female

DRUGS (2)
  1. ESTRADIOL TRANSDERMAL SYSTEM [Suspect]
     Active Substance: ESTRADIOL
     Indication: Blood oestrogen
     Dosage: 0.0375 MILLIGRAM, QD (PER DAY, ONCE-WEEKLY)
     Route: 062
  2. ESTRADIOL TRANSDERMAL SYSTEM [Suspect]
     Active Substance: ESTRADIOL
     Indication: Progesterone

REACTIONS (4)
  - Application site urticaria [Unknown]
  - Application site erythema [Unknown]
  - Application site pruritus [Unknown]
  - Product adhesion issue [Unknown]

NARRATIVE: CASE EVENT DATE: 20241001
